FAERS Safety Report 5175552-7 (Version None)
Quarter: 2006Q4

REPORT INFORMATION
  Report Type: 
  Country: None (occurrence: None)
  Receive Date: 20061215
  Receipt Date: 20061205
  Transmission Date: 20070319
  Serious: Yes (Death, Life-Threatening)
  Sender: FDA-Public Use
  Company Number: GB-JNJFOC-20060902374

PATIENT
  Sex: Female

DRUGS (7)
  1. DAKTARIN [Suspect]
     Indication: ORAL CANDIDIASIS
     Route: 048
  2. WARFARIN SODIUM [Interacting]
     Indication: DEEP VEIN THROMBOSIS
  3. ACETAMINOPHEN [Concomitant]
     Indication: ANALGESIC EFFECT
     Route: 065
  4. LISINOPRIL [Concomitant]
     Indication: HYPERTENSION
     Route: 065
  5. LEVOTHYROXINE SODIUM [Concomitant]
     Indication: HYPOTHYROIDISM
     Dosage: 2-3 TIMES A DAY
     Route: 065
  6. ATENOLOL [Concomitant]
     Indication: HYPERTENSION
     Route: 065
  7. BUMETANIDE [Concomitant]
     Indication: HYPERTENSION
     Dosage: AS PER INR
     Route: 065

REACTIONS (8)
  - DRUG INTERACTION [None]
  - FALL [None]
  - GASTROINTESTINAL HAEMORRHAGE [None]
  - HAEMARTHROSIS [None]
  - INTERNATIONAL NORMALISED RATIO INCREASED [None]
  - JOINT DISLOCATION [None]
  - OESOPHAGEAL ULCER [None]
  - UPPER LIMB FRACTURE [None]
